FAERS Safety Report 12297432 (Version 1)
Quarter: 2016Q2

REPORT INFORMATION
  Report Type: Spontaneous
  Country: NL (occurrence: NL)
  Receive Date: 20160422
  Receipt Date: 20160422
  Transmission Date: 20160815
  Serious: Yes (Other)
  Sender: FDA-Public Use
  Company Number: NL-TEVA-652606ISR

PATIENT
  Age: 63 Year
  Sex: Male

DRUGS (4)
  1. TRIAMCINOLON [Concomitant]
     Route: 065
  2. DOXYCYCLINE TABLET 100MG [Suspect]
     Active Substance: DOXYCYCLINE
     Indication: SINUSITIS
     Dosage: 100 MILLIGRAM DAILY;
     Route: 048
  3. FORMOTEROL/ BUDESONIDE [Concomitant]
     Route: 065
  4. DOXYCYCLINE TABLET 100MG [Suspect]
     Active Substance: DOXYCYCLINE
     Indication: BRONCHITIS

REACTIONS (4)
  - Hypersensitivity vasculitis [Recovered/Resolved]
  - Haematoma [Recovered/Resolved]
  - Purpura [Recovered/Resolved]
  - Blood blister [Recovered/Resolved]
